FAERS Safety Report 25882904 (Version 1)
Quarter: 2025Q4

REPORT INFORMATION
  Report Type: Spontaneous
  Country: EU (occurrence: EU)
  Receive Date: 20251006
  Receipt Date: 20251006
  Transmission Date: 20260118
  Serious: Yes (Hospitalization, Other)
  Sender: CHEPLAPHARM
  Company Number: None

PATIENT
  Age: 60 Year
  Sex: Male
  Weight: 88 kg

DRUGS (21)
  1. CLONAZEPAM [Interacting]
     Active Substance: CLONAZEPAM
     Indication: Suicide attempt
     Dosage: CONCOMITANT?DAILY DOSE: 2 MILLIGRAM
     Route: 048
     Dates: start: 20180504, end: 20250811
  2. CLONAZEPAM [Interacting]
     Active Substance: CLONAZEPAM
     Indication: Drug dependence
     Dosage: CONCOMITANT?DAILY DOSE: 2 MILLIGRAM
     Route: 048
     Dates: start: 20180504, end: 20250811
  3. CLONAZEPAM [Interacting]
     Active Substance: CLONAZEPAM
     Indication: Suicide attempt
     Dosage: 60 TABLETS
     Route: 048
     Dates: start: 20250811, end: 20250811
  4. CLONAZEPAM [Interacting]
     Active Substance: CLONAZEPAM
     Indication: Drug dependence
     Dosage: 60 TABLETS
     Route: 048
     Dates: start: 20250811, end: 20250811
  5. CLONAZEPAM [Interacting]
     Active Substance: CLONAZEPAM
     Indication: Suicide attempt
     Dosage: 0.5 MG 1-0-1?DAILY DOSE: 1 MILLIGRAM
     Route: 048
  6. CLONAZEPAM [Interacting]
     Active Substance: CLONAZEPAM
     Indication: Drug dependence
     Dosage: 0.5 MG 1-0-1?DAILY DOSE: 1 MILLIGRAM
     Route: 048
  7. GABAPENTIN [Interacting]
     Active Substance: GABAPENTIN
     Indication: Suicide attempt
     Dosage: CONCOMITANT?DAILY DOSE: 400 MILLIGRAM
     Route: 048
     Dates: start: 20180523, end: 20250811
  8. GABAPENTIN [Interacting]
     Active Substance: GABAPENTIN
     Indication: Pain
     Dosage: CONCOMITANT?DAILY DOSE: 400 MILLIGRAM
     Route: 048
     Dates: start: 20180523, end: 20250811
  9. GABAPENTIN [Interacting]
     Active Substance: GABAPENTIN
     Indication: Suicide attempt
     Dosage: 90 TABLETS
     Route: 048
     Dates: start: 20250811, end: 20250811
  10. GABAPENTIN [Interacting]
     Active Substance: GABAPENTIN
     Indication: Pain
     Dosage: 90 TABLETS
     Route: 048
     Dates: start: 20250811, end: 20250811
  11. GABAPENTIN [Interacting]
     Active Substance: GABAPENTIN
     Indication: Suicide attempt
     Dosage: 300 MG 1-0-1-2?DAILY DOSE: 1200 MILLIGRAM
     Route: 048
  12. GABAPENTIN [Interacting]
     Active Substance: GABAPENTIN
     Indication: Pain
     Dosage: 300 MG 1-0-1-2?DAILY DOSE: 1200 MILLIGRAM
     Route: 048
  13. GABAPENTIN [Interacting]
     Active Substance: GABAPENTIN
     Indication: Suicide attempt
     Dosage: 1 TABLET AT BREAKFAST AND ANOTHER AT DINNER (1-0-1-0)?DAILY DOSE: 600 MILLIGRAM
     Route: 048
  14. GABAPENTIN [Interacting]
     Active Substance: GABAPENTIN
     Indication: Pain
     Dosage: 1 TABLET AT BREAKFAST AND ANOTHER AT DINNER (1-0-1-0)?DAILY DOSE: 600 MILLIGRAM
     Route: 048
  15. TRAMADOL [Interacting]
     Active Substance: TRAMADOL
     Indication: Suicide attempt
     Dosage: 50 MG 2-0-2?DAILY DOSE: 200 MILLIGRAM
     Route: 048
     Dates: start: 20180604, end: 20250811
  16. TRAMADOL [Interacting]
     Active Substance: TRAMADOL
     Indication: Pain
     Dosage: 50 MG 2-0-2?DAILY DOSE: 200 MILLIGRAM
     Route: 048
     Dates: start: 20180604, end: 20250811
  17. TRAMADOL [Interacting]
     Active Substance: TRAMADOL
     Indication: Suicide attempt
     Dosage: 60 CAPSULES
     Route: 048
     Dates: start: 20250811, end: 20250811
  18. TRAMADOL [Interacting]
     Active Substance: TRAMADOL
     Indication: Pain
     Dosage: 60 CAPSULES
     Route: 048
     Dates: start: 20250811, end: 20250811
  19. DEXKETOPROFEN [Concomitant]
     Active Substance: DEXKETOPROFEN
  20. ACETAMINOPHEN [Concomitant]
     Active Substance: ACETAMINOPHEN
  21. LORMETAZEPAM [Concomitant]
     Active Substance: LORMETAZEPAM
     Dosage: 2 MG 0-0-1?DAILY DOSE: 2 MILLIGRAM

REACTIONS (10)
  - Hallucination, visual [Recovered/Resolved]
  - Blood creatine phosphokinase increased [Recovered/Resolved]
  - Acute kidney injury [Recovered/Resolved]
  - Somnolence [Recovered/Resolved]
  - Rhabdomyolysis [Recovered/Resolved]
  - Thrombocytopenia [Recovered/Resolved]
  - Toxicity to various agents [Recovered/Resolved]
  - Suicidal ideation [Recovered/Resolved]
  - Drug abuse [Recovered/Resolved]
  - Intentional overdose [Recovered/Resolved]

NARRATIVE: CASE EVENT DATE: 20250811
